FAERS Safety Report 8450348-9 (Version None)
Quarter: 2012Q2

REPORT INFORMATION
  Report Type: 
  Country: None (occurrence: None)
  Receive Date: 20120620
  Receipt Date: 20120618
  Transmission Date: 20120825
  Serious: No
  Sender: FDA-Public Use
  Company Number: PHHY2012FR000795

PATIENT
  Age: 55 Year
  Sex: Male
  Weight: 70 kg

DRUGS (3)
  1. LAMICTAL [Concomitant]
     Indication: EPILEPSY
     Dosage: 150 MG, DAILY
     Route: 048
     Dates: start: 20030101, end: 20110901
  2. ONBREZ [Suspect]
     Indication: CHRONIC OBSTRUCTIVE PULMONARY DISEASE
     Dosage: 300 UG, QD
     Dates: start: 20111006, end: 20111201
  3. SPIRIVA [Concomitant]
     Indication: CHRONIC OBSTRUCTIVE PULMONARY DISEASE

REACTIONS (3)
  - LOSS OF CONSCIOUSNESS [None]
  - STRESS [None]
  - EPILEPSY [None]
